FAERS Safety Report 4535295-7 (Version None)
Quarter: 2004Q4

REPORT INFORMATION
  Report Type: 
  Country: None (occurrence: None)
  Receive Date: 20041214
  Receipt Date: 20040924
  Transmission Date: 20050328
  Serious: No
  Sender: FDA-Public Use
  Company Number: 2004237421US

PATIENT
  Age: 76 Year
  Sex: Female
  Weight: 50.3 kg

DRUGS (9)
  1. BEXTRA [Suspect]
     Dosage: 10 MG, QD, ORAL
     Route: 048
     Dates: start: 20040901
  2. LANOXIN [Concomitant]
  3. HYZAAR [Concomitant]
  4. ALBUTEROL [Concomitant]
  5. IPRATROPIUM BROMIDE [Concomitant]
  6. PERSANTINE [Concomitant]
  7. NITRO [Concomitant]
  8. COMBIVENT [Concomitant]
  9. CARDIZEM [Concomitant]

REACTIONS (6)
  - CHEST PAIN [None]
  - CONSTIPATION [None]
  - DIARRHOEA [None]
  - HEADACHE [None]
  - OEDEMA PERIPHERAL [None]
  - URINE OUTPUT DECREASED [None]
